FAERS Safety Report 9774890 (Version 1)
Quarter: 2013Q4

REPORT INFORMATION
  Report Type: Spontaneous
  Country: US (occurrence: US)
  Receive Date: 20131220
  Receipt Date: 20131220
  Transmission Date: 20140711
  Serious: No
  Sender: FDA-Public Use
  Company Number: US-GLAXOSMITHKLINE-A1008369A

PATIENT
  Age: 61 Year
  Sex: Male

DRUGS (7)
  1. DUTASTERIDE [Suspect]
     Indication: PRODUCT USED FOR UNKNOWN INDICATION
     Dosage: .5MG UNKNOWN
     Route: 065
     Dates: start: 20130220
  2. AVODART [Suspect]
     Indication: BENIGN PROSTATIC HYPERPLASIA
     Dosage: 5MG PER DAY
     Route: 048
     Dates: start: 20130109
  3. COFFEE [Suspect]
     Indication: PRODUCT USED FOR UNKNOWN INDICATION
     Route: 048
  4. LORATADINE [Concomitant]
  5. LOVASTATIN [Concomitant]
  6. FISH OIL [Concomitant]
  7. CENTRUM MULTIVITAMIN [Concomitant]

REACTIONS (2)
  - Blood pressure increased [Unknown]
  - Drug ineffective [Unknown]
